FAERS Safety Report 15689561 (Version 1)
Quarter: 2018Q4

REPORT INFORMATION
  Report Type: Spontaneous
  Country: US (occurrence: US)
  Receive Date: 20181205
  Receipt Date: 20181205
  Transmission Date: 20190205
  Serious: No
  Sender: FDA-Public Use
  Company Number: US-GLAXOSMITHKLINE-US2018217238

PATIENT
  Sex: Female

DRUGS (1)
  1. TRANSDERM SCOP [Suspect]
     Active Substance: SCOPOLAMINE
     Indication: PRODUCT USED FOR UNKNOWN INDICATION
     Dosage: UNK
     Dates: end: 20181122

REACTIONS (4)
  - Dizziness [Not Recovered/Not Resolved]
  - Mood swings [Not Recovered/Not Resolved]
  - Balance disorder [Not Recovered/Not Resolved]
  - Disorientation [Not Recovered/Not Resolved]
